FAERS Safety Report 5094318-X (Version None)
Quarter: 2006Q3

REPORT INFORMATION
  Report Type: 
  Country: None (occurrence: None)
  Receive Date: 20060830
  Receipt Date: 20060830
  Transmission Date: 20061208
  Serious: Yes (Disabling)
  Sender: FDA-Public Use
  Company Number: None

PATIENT
  Sex: Female
  Weight: 66.6788 kg

DRUGS (2)
  1. XOLAIR [Suspect]
     Indication: ASTHMA
     Dosage: 150MG Q 4 WEEKS SQ
     Route: 058
     Dates: start: 20060201, end: 20060831
  2. XOLAIR [Suspect]
     Indication: MULTIPLE ALLERGIES
     Dosage: 150MG Q 4 WEEKS SQ
     Route: 058
     Dates: start: 20060201, end: 20060831

REACTIONS (4)
  - ARTHROPATHY [None]
  - LIGAMENT DISORDER [None]
  - MOVEMENT DISORDER [None]
  - TENDON DISORDER [None]
